FAERS Safety Report 20684658 (Version 1)
Quarter: 2022Q2

REPORT INFORMATION
  Report Type: Spontaneous
  Country: US (occurrence: None)
  Receive Date: 20220406
  Receipt Date: 20220406
  Transmission Date: 20220721
  Serious: No
  Sender: FDA-Public Use
  Company Number: None

PATIENT
  Age: 49 Year
  Sex: Female
  Weight: 81 kg

DRUGS (1)
  1. RINVOQ [Suspect]
     Active Substance: UPADACITINIB

REACTIONS (4)
  - Product substitution issue [None]
  - Arthralgia [None]
  - Insomnia [None]
  - COVID-19 immunisation [None]

NARRATIVE: CASE EVENT DATE: 20220303
